FAERS Safety Report 25717716 (Version 1)
Quarter: 2025Q3

REPORT INFORMATION
  Report Type: Spontaneous
  Country: US (occurrence: US)
  Receive Date: 20250822
  Receipt Date: 20250822
  Transmission Date: 20251021
  Serious: No
  Sender: AMGEN
  Company Number: US-AMGEN-USASP2025163685

PATIENT

DRUGS (1)
  1. MVASI [Suspect]
     Active Substance: BEVACIZUMAB-AWWB
     Indication: Brain neoplasm
     Route: 065

REACTIONS (2)
  - General physical health deterioration [Unknown]
  - Off label use [Unknown]
